FAERS Safety Report 5625201-6 (Version None)
Quarter: 2008Q1

REPORT INFORMATION
  Report Type: 
  Country: None (occurrence: None)
  Receive Date: 20080205
  Receipt Date: 20080123
  Transmission Date: 20080703
  Serious: Yes (Death, Life-Threatening)
  Sender: FDA-Public Use
  Company Number: AECAN200800015

PATIENT
  Age: 74 Year
  Sex: Female

DRUGS (1)
  1. ALBUMINAR-25 [Suspect]
     Indication: HYPOALBUMINAEMIA
     Dosage: 1100 ML;TOTAL;IV
     Route: 042
     Dates: start: 20080116, end: 20080119

REACTIONS (5)
  - BODY TEMPERATURE INCREASED [None]
  - CARDIO-RESPIRATORY ARREST [None]
  - COOMBS DIRECT TEST POSITIVE [None]
  - CORONARY ARTERY INSUFFICIENCY [None]
  - OXYGEN SATURATION DECREASED [None]
